FAERS Safety Report 4945882-X (Version None)
Quarter: 2006Q1

REPORT INFORMATION
  Report Type: 
  Country: None (occurrence: None)
  Receive Date: 20060117
  Receipt Date: 20041217
  Transmission Date: 20060701
  Serious: Yes (Hospitalization)
  Sender: FDA-Public Use
  Company Number: A03200404299

PATIENT
  Age: 79 Year
  Sex: Male
  Weight: 79.3795 kg

DRUGS (2)
  1. PLAVIX [Suspect]
     Indication: MYOCARDIAL INFARCTION
     Dosage: 75 MG QD - ORAL
     Route: 048
     Dates: start: 20040301, end: 20041112
  2. ACETYLSALICYLIC ACID SRT [Concomitant]

REACTIONS (3)
  - GOUT [None]
  - HAEMORRHOIDAL HAEMORRHAGE [None]
  - LARGE INTESTINAL HAEMORRHAGE [None]
